FAERS Safety Report 4921551-7 (Version None)
Quarter: 2006Q1

REPORT INFORMATION
  Report Type: 
  Country: None (occurrence: None)
  Receive Date: 20060222
  Receipt Date: 20060222
  Transmission Date: 20060701
  Serious: No
  Sender: FDA-Public Use
  Company Number: None

PATIENT
  Sex: Male

DRUGS (1)
  1. COUMADIN [Suspect]
     Dosage: 1 MG 3 X DAILY
     Dates: start: 20030801

REACTIONS (1)
  - INTERNATIONAL NORMALISED RATIO FLUCTUATION [None]
